FAERS Safety Report 15571366 (Version 1)
Quarter: 2018Q4

REPORT INFORMATION
  Report Type: Spontaneous
  Country: US (occurrence: US)
  Receive Date: 20181031
  Receipt Date: 20181031
  Transmission Date: 20190205
  Serious: No
  Sender: FDA-Public Use
  Company Number: US-ACTELION-A-NJ2018-180799

PATIENT
  Age: 40 Year
  Sex: Female
  Weight: 72.56 kg

DRUGS (3)
  1. WARFARIN [Concomitant]
     Active Substance: WARFARIN
  2. TRACLEER [Suspect]
     Active Substance: BOSENTAN
     Indication: PULMONARY ARTERIAL HYPERTENSION
     Dosage: 125 MG, BID
     Route: 048
  3. ORENITRAM [Concomitant]
     Active Substance: TREPROSTINIL

REACTIONS (2)
  - Post-traumatic stress disorder [Unknown]
  - Bipolar disorder [Unknown]
